FAERS Safety Report 15750698 (Version 1)
Quarter: 2018Q4

REPORT INFORMATION
  Report Type: Spontaneous
  Country: US (occurrence: US)
  Receive Date: 20181221
  Receipt Date: 20181221
  Transmission Date: 20190205
  Serious: Yes (Hospitalization)
  Sender: FDA-Public Use
  Company Number: None

PATIENT
  Age: 61 Year
  Sex: Female

DRUGS (14)
  1. METAXALONE. [Concomitant]
     Active Substance: METAXALONE
  2. PRAVASTATIN. [Concomitant]
     Active Substance: PRAVASTATIN
  3. CARVEDILOL. [Concomitant]
     Active Substance: CARVEDILOL
  4. PROAIR HFA [Concomitant]
     Active Substance: ALBUTEROL SULFATE
  5. BUSPIRONE [Concomitant]
     Active Substance: BUSPIRONE HYDROCHLORIDE
  6. AZITHROMYCIN ANHYDROUS. [Concomitant]
     Active Substance: AZITHROMYCIN ANHYDROUS
  7. SILDENAFIL. [Suspect]
     Active Substance: SILDENAFIL
     Indication: PULMONARY HYPERTENSION
     Route: 048
     Dates: start: 20181028
  8. FUROSEMIDE. [Concomitant]
     Active Substance: FUROSEMIDE
  9. ATENOLOL. [Concomitant]
     Active Substance: ATENOLOL
  10. TRACLEER [Concomitant]
     Active Substance: BOSENTAN
  11. IBUPROFEN. [Concomitant]
     Active Substance: IBUPROFEN
  12. NAPROXEN. [Concomitant]
     Active Substance: NAPROXEN
  13. AMOXICILLIN. [Concomitant]
     Active Substance: AMOXICILLIN
  14. LISINOPRIL. [Concomitant]
     Active Substance: LISINOPRIL

REACTIONS (1)
  - Pulmonary oedema [None]

NARRATIVE: CASE EVENT DATE: 20181216
